FAERS Safety Report 21709693 (Version 1)
Quarter: 2022Q4

REPORT INFORMATION
  Report Type: Spontaneous
  Country: FR (occurrence: FR)
  Receive Date: 20221210
  Receipt Date: 20221210
  Transmission Date: 20230113
  Serious: Yes (Hospitalization, Other)
  Sender: FDA-Public Use
  Company Number: None

PATIENT
  Age: 55 Year
  Sex: Female

DRUGS (1)
  1. ZOLPIDEM [Suspect]
     Active Substance: ZOLPIDEM TARTRATE
     Indication: Product used for unknown indication
     Dosage: 5-6 TABLETS 3 TIMES A DAY (28 TABLETS IN 2 DAYS), THERAPY END DATE : NASK, DURATION : 16 YEARS
     Dates: start: 2005

REACTIONS (3)
  - Drug detoxification [Recovering/Resolving]
  - Drug dependence [Recovering/Resolving]
  - Intentional product misuse [Recovering/Resolving]

NARRATIVE: CASE EVENT DATE: 20050101
